FAERS Safety Report 9194349 (Version 1)
Quarter: 2013Q1

REPORT INFORMATION
  Report Type: Spontaneous
  Country: GB (occurrence: GB)
  Receive Date: 20130327
  Receipt Date: 20130327
  Transmission Date: 20140127
  Serious: Yes (Other)
  Sender: FDA-Public Use
  Company Number: GB-RB-051373-13

PATIENT
  Age: 18 Year
  Sex: Male

DRUGS (2)
  1. CLEARASIL ULTRA RAPID ACTION FACE SCRUB [Suspect]
     Indication: PRODUCT USED FOR UNKNOWN INDICATION
     Route: 061
     Dates: start: 20130312
  2. CLEARASIL ULTRA RAPID ACTION FACE SCRUB [Suspect]
     Indication: PRODUCT USED FOR UNKNOWN INDICATION
     Route: 061
     Dates: start: 20130312

REACTIONS (8)
  - Hypersensitivity [Recovering/Resolving]
  - Eye swelling [Recovering/Resolving]
  - Ear swelling [Recovering/Resolving]
  - Lip swelling [Recovering/Resolving]
  - Visual impairment [Recovering/Resolving]
  - Headache [Recovering/Resolving]
  - Rash pruritic [Recovering/Resolving]
  - Erythema [Recovering/Resolving]
